FAERS Safety Report 22131380 (Version 3)
Quarter: 2023Q2

REPORT INFORMATION
  Report Type: Spontaneous
  Country: US (occurrence: US)
  Receive Date: 20230323
  Receipt Date: 20230614
  Transmission Date: 20230722
  Serious: No
  Sender: FDA-Public Use
  Company Number: US-APIL-2308506US

PATIENT
  Age: 67 Year
  Sex: Male
  Weight: 73.935 kg

DRUGS (14)
  1. COMBIGAN [Suspect]
     Active Substance: BRIMONIDINE TARTRATE\TIMOLOL MALEATE
     Indication: Glaucoma
     Route: 061
     Dates: start: 2021, end: 20230228
  2. Basaglar Kwikpen U-100 Insulin [Concomitant]
     Indication: Product used for unknown indication
     Dosage: 100 IU/ ML ( 3 ML)/ 5 UNITS; EVERY MORNING BEFORE BREAKFAST
     Route: 058
  3. MIRTAZAPINE [Concomitant]
     Active Substance: MIRTAZAPINE
     Indication: Product used for unknown indication
     Dosage: FORM STRENGTH: 15 MILLIGRAM; QPM
  4. Cyclosporine 0.05% eye drops in a dropperette [Concomitant]
     Indication: Product used for unknown indication
     Dosage: 1 DROP BOTH EYES TWICE A DAY
  5. VITAMINS [Concomitant]
     Active Substance: VITAMINS
     Indication: Product used for unknown indication
     Route: 048
  6. latanoprost 0.005% eye drops [Concomitant]
     Indication: Product used for unknown indication
     Dosage: 1 DROP BOTH EYES AT BED TIME
  7. Sodium fluoride 1.1% potassium Nitrate 5% Dental Paste [Concomitant]
     Indication: Product used for unknown indication
  8. Metformin Er 500 mg tablet, extended release [Concomitant]
     Indication: Product used for unknown indication
     Dosage: FORM STRENGTH 500 MILLIGRAM
  9. TAMSULOSIN [Concomitant]
     Active Substance: TAMSULOSIN
     Indication: Product used for unknown indication
  10. PREGABALIN [Concomitant]
     Active Substance: PREGABALIN
     Indication: Product used for unknown indication
     Dosage: FORM STRENGTH: 100 MILLIGRAM; 1 TAB IN A.M AND 4 TABS IN H.S
  11. DORZOLAMIDE [Concomitant]
     Active Substance: DORZOLAMIDE
     Indication: Product used for unknown indication
     Dosage: FORM STRENGTH: 6.8 MILLIGRAM; 1 DROP BOTH EYES TWICE A DAY
     Route: 047
  12. ROSUVASTATIN [Concomitant]
     Active Substance: ROSUVASTATIN
     Indication: Product used for unknown indication
     Dosage: FORM STRENGTH: 5 MILLIGRAM
  13. VITAMIN D [Concomitant]
     Active Substance: VITAMIN D NOS
     Indication: Product used for unknown indication
     Route: 048
  14. Icosapent Ethyl 1 gram [Concomitant]
     Indication: Product used for unknown indication
     Dosage: 1 DAILY FOR 4 DAYS EACH WEEK
     Route: 048

REACTIONS (5)
  - Corneal disorder [Recovered/Resolved]
  - Eye infection [Recovered/Resolved]
  - Ocular hyperaemia [Recovered/Resolved]
  - Lacrimation increased [Recovered/Resolved]
  - Hypersensitivity [Unknown]

NARRATIVE: CASE EVENT DATE: 20230201
